FAERS Safety Report 8975187 (Version 2)
Quarter: 2012Q4

REPORT INFORMATION
  Report Type: 
  Country: FR (occurrence: FR)
  Receive Date: 20121219
  Receipt Date: 20121227
  Transmission Date: 20130627
  Serious: Yes (Death, Hospitalization, Other)
  Sender: FDA-Public Use
  Company Number: PHHY2012FR116789

PATIENT
  Age: 49 Year
  Sex: Male

DRUGS (3)
  1. LEPONEX [Suspect]
     Dosage: 100 mg, UNK
     Route: 048
     Dates: end: 20121128
  2. PROZAC [Concomitant]
     Dosage: 20 mg, UNK
     Route: 048
     Dates: end: 20121128
  3. ABILIFY [Concomitant]
     Dosage: 5 mg, UNK
     Route: 048
     Dates: end: 20121128

REACTIONS (14)
  - Small intestinal obstruction [Fatal]
  - Abdominal distension [Fatal]
  - Intestinal dilatation [Fatal]
  - Vomiting [Fatal]
  - Cardio-respiratory arrest [Unknown]
  - Hypovolaemic shock [Unknown]
  - Haemodynamic instability [Unknown]
  - Hypothermia [Unknown]
  - Coma scale abnormal [Unknown]
  - Hyperkalaemia [Unknown]
  - Lactic acidosis [Unknown]
  - Septic shock [Unknown]
  - Renal failure [Unknown]
  - Renal failure acute [Unknown]
